FAERS Safety Report 7280114-1 (Version None)
Quarter: 2011Q1

REPORT INFORMATION
  Report Type: 
  Country: None (occurrence: None)
  Receive Date: 20110208
  Receipt Date: 20101014
  Transmission Date: 20110831
  Serious: Yes (Death)
  Sender: FDA-Public Use
  Company Number: US-SANOFI-AVENTIS-2010SA066603

PATIENT
  Age: 50 Year
  Sex: Male

DRUGS (6)
  1. VENLAFAXINE [Suspect]
     Indication: BIPOLAR DISORDER
     Route: 065
  2. AMBIEN [Suspect]
     Indication: INSOMNIA
     Dosage: FREQUENCY- 1 TABLET EVERY NIGHT AS NEEDED
     Route: 048
     Dates: start: 20040101, end: 20100811
  3. LAMOTRIGINE [Suspect]
     Indication: BIPOLAR DISORDER
     Route: 065
  4. AMBIEN [Suspect]
     Indication: BIPOLAR DISORDER
     Dosage: FREQUENCY- 1 TABLET EVERY NIGHT AS NEEDED
     Route: 048
     Dates: start: 20040101, end: 20100811
  5. AMBIEN [Suspect]
     Dosage: TOOK 2-3 ZOLPIDEM TABLETS
     Route: 048
     Dates: start: 20100801, end: 20100801
  6. AMBIEN [Suspect]
     Dosage: TOOK 2-3 ZOLPIDEM TABLETS
     Route: 048
     Dates: start: 20100801, end: 20100801

REACTIONS (4)
  - COMPLETED SUICIDE [None]
  - ACCIDENTAL OVERDOSE [None]
  - CONFUSIONAL STATE [None]
  - MEMORY IMPAIRMENT [None]
